FAERS Safety Report 16633396 (Version 1)
Quarter: 2019Q3

REPORT INFORMATION
  Report Type: Report from Study
  Country: US (occurrence: US)
  Receive Date: 20190725
  Receipt Date: 20190725
  Transmission Date: 20191004
  Serious: Yes (Other)
  Sender: FDA-Public Use
  Company Number: US-BRACCO-2018US06400

PATIENT
  Sex: Female

DRUGS (1)
  1. SODIUM IODIDE I 131 [Suspect]
     Active Substance: SODIUM IODIDE I-131
     Indication: RADIOTHERAPY
     Dosage: 200.9 MCI OF IODINE 131

REACTIONS (2)
  - Sialoadenitis [Recovered/Resolved]
  - Salivary duct stenosis [Recovered/Resolved]
